FAERS Safety Report 6039260-2 (Version None)
Quarter: 2009Q1

REPORT INFORMATION
  Report Type: 
  Country: None (occurrence: None)
  Receive Date: 20090115
  Receipt Date: 20090107
  Transmission Date: 20090719
  Serious: Yes (Other)
  Sender: FDA-Public Use
  Company Number: PHEH2009US00522

PATIENT
  Sex: Male

DRUGS (3)
  1. ZOMETA [Suspect]
     Indication: MULTIPLE MYELOMA
     Dosage: 4 MG, QMO
     Route: 042
     Dates: start: 20010101, end: 20050101
  2. ALKERAN [Concomitant]
  3. LISINOPRIL [Concomitant]

REACTIONS (2)
  - BONE DISORDER [None]
  - SECRETION DISCHARGE [None]
